FAERS Safety Report 9749460 (Version 1)
Quarter: 2013Q4

REPORT INFORMATION
  Report Type: Spontaneous
  Country: US (occurrence: US)
  Receive Date: 20131212
  Receipt Date: 20131212
  Transmission Date: 20140711
  Serious: Yes (Hospitalization, Other)
  Sender: FDA-Public Use
  Company Number: US-PFIZER INC-2013351176

PATIENT
  Age: 61 Year
  Sex: Female
  Weight: 113 kg

DRUGS (2)
  1. CELEBREX [Suspect]
     Indication: ARTHRALGIA
     Dosage: 200 MG, 1X/DAY
     Route: 048
     Dates: start: 1994, end: 201111
  2. LISINOPRIL [Concomitant]
     Indication: BLOOD PRESSURE ABNORMAL
     Dosage: 40 MG, 1X/DAY

REACTIONS (3)
  - Dyspnoea [Recovered/Resolved]
  - Asthma [Recovered/Resolved]
  - Chronic obstructive pulmonary disease [Recovered/Resolved]
